FAERS Safety Report 21924730 (Version 1)
Quarter: 2023Q1

REPORT INFORMATION
  Report Type: Spontaneous
  Country: US (occurrence: US)
  Receive Date: 20230130
  Receipt Date: 20230130
  Transmission Date: 20230418
  Serious: No
  Sender: FDA-Public Use
  Company Number: US-TARO PHARMACEUTICALS USA INC.-2022TAR00416

PATIENT
  Sex: Female

DRUGS (1)
  1. BENZOYL PEROXIDE\CLINDAMYCIN PHOSPHATE [Suspect]
     Active Substance: BENZOYL PEROXIDE\CLINDAMYCIN PHOSPHATE
     Indication: Product used for unknown indication
     Dosage: UNK, AT NIGHT,FACE
     Route: 061
     Dates: start: 20220304, end: 20220307

REACTIONS (1)
  - Application site swelling [Recovered/Resolved]

NARRATIVE: CASE EVENT DATE: 20220304
